FAERS Safety Report 19678470 (Version 1)
Quarter: 2021Q3

REPORT INFORMATION
  Report Type: Report from Study
  Country: US (occurrence: US)
  Receive Date: 20210809
  Receipt Date: 20210809
  Transmission Date: 20211014
  Serious: Yes (Other)
  Sender: FDA-Public Use
  Company Number: US-SHIONOGI, INC-2019001014

PATIENT
  Age: 25 Year
  Sex: Female
  Weight: 35 kg

DRUGS (34)
  1. DELAFLOXACIN [Concomitant]
     Active Substance: DELAFLOXACIN MEGLUMINE
     Indication: RESPIRATORY TRACT INFECTION
     Dosage: 300 MG, 1 PER 12 HOUR, 3 DOSES
     Route: 042
     Dates: start: 20190813, end: 20190814
  2. FIDAXOMICIN [Concomitant]
     Active Substance: FIDAXOMICIN
     Indication: INFECTION PROPHYLAXIS
     Dosage: 200 MG, QD
     Route: 065
     Dates: start: 20190831
  3. AMIKACIN. [Concomitant]
     Active Substance: AMIKACIN
     Indication: MYCOBACTERIUM ABSCESSUS INFECTION
     Dosage: 500 MG, UNK, NEB
     Dates: start: 20190827, end: 20190910
  4. DIPHENHYDRAMINE. [Concomitant]
     Active Substance: DIPHENHYDRAMINE
     Indication: HYPERSENSITIVITY
     Dosage: 25 MG, PRN EVERY 4 HOURS
     Route: 042
     Dates: start: 20190829, end: 20190904
  5. DIPHENHYDRAMINE. [Concomitant]
     Active Substance: DIPHENHYDRAMINE
     Dosage: 50 MG, 4 PER 1 DAY PRN
     Route: 042
     Dates: start: 20190907, end: 20190911
  6. LACTOBACILLUS ACIDOPHILUS [Concomitant]
     Active Substance: LACTOBACILLUS ACIDOPHILUS
     Indication: PRODUCT USED FOR UNKNOWN INDICATION
     Route: 065
  7. COLISTIN [Concomitant]
     Active Substance: COLISTIN
     Indication: RESPIRATORY TRACT INFECTION
     Dosage: 190 MG, SINGLE
     Route: 042
     Dates: start: 20190813, end: 20190813
  8. VABOMERE [Concomitant]
     Active Substance: MEROPENEM\VABORBACTAM
     Indication: RESPIRATORY TRACT INFECTION
     Dosage: 4 G, 1 PER 8 HOUR
     Route: 042
     Dates: start: 20190827, end: 20190902
  9. MEROPENEM. [Concomitant]
     Active Substance: MEROPENEM
     Indication: RESPIRATORY TRACT INFECTION
     Dosage: 1 G, UNK
     Route: 042
     Dates: start: 20190822, end: 20190823
  10. TRIMETHOPRIM SULFAMETHOXAZOLE [Concomitant]
     Active Substance: SULFAMETHOXAZOLE\TRIMETHOPRIM
     Indication: RESPIRATORY TRACT INFECTION
     Dosage: 190 MG, 1 PER 12 HOUR
     Route: 042
     Dates: start: 20190823, end: 20190831
  11. TEDIZOLID [Concomitant]
     Active Substance: TEDIZOLID
     Indication: MYCOBACTERIUM ABSCESSUS INFECTION
     Dosage: 200 MG, 1 PER 24 HOUR
     Route: 042
     Dates: start: 20190827, end: 20190829
  12. IMIPENEM AND CILASTATIN [Concomitant]
     Active Substance: CILASTATIN SODIUM\IMIPENEM
     Dosage: 500 MG, 1 PER 12 HOUR
     Route: 042
     Dates: start: 20190902
  13. LEVALBUTEROL HCL [Concomitant]
     Active Substance: LEVALBUTEROL HYDROCHLORIDE
     Indication: PRODUCT USED FOR UNKNOWN INDICATION
     Route: 065
  14. MORPHINE [Concomitant]
     Active Substance: MORPHINE
     Indication: PRODUCT USED FOR UNKNOWN INDICATION
     Route: 065
  15. IMIPENEM AND CILASTATIN [Concomitant]
     Active Substance: CILASTATIN SODIUM\IMIPENEM
     Indication: MYCOBACTERIUM ABSCESSUS INFECTION
     Dosage: 500 MG, 1 PER 12 HOUR
     Route: 042
     Dates: start: 20190813, end: 20190816
  16. FLUCONAZOLE. [Concomitant]
     Active Substance: FLUCONAZOLE
     Indication: CANDIDA INFECTION
     Dosage: 200 MG, 1 PER 24 HOUR
     Route: 065
     Dates: start: 20190911, end: 20190925
  17. ERAVACYCLINE. [Suspect]
     Active Substance: ERAVACYCLINE
     Indication: MYCOBACTERIUM ABSCESSUS INFECTION
     Dosage: 40 MG, 1 PER 12 HOUR
     Route: 042
     Dates: start: 20190826, end: 20190827
  18. CHOLESTYRAMINE. [Concomitant]
     Active Substance: CHOLESTYRAMINE
     Indication: PRODUCT USED FOR UNKNOWN INDICATION
     Route: 065
  19. AZITHROMYCIN ANHYDROUS. [Concomitant]
     Active Substance: AZITHROMYCIN ANHYDROUS
     Indication: PRODUCT USED FOR UNKNOWN INDICATION
     Dosage: UNK
     Route: 065
     Dates: start: 20190813
  20. FERROUS SULFATE. [Concomitant]
     Active Substance: FERROUS SULFATE
     Indication: PRODUCT USED FOR UNKNOWN INDICATION
     Route: 065
  21. IPRATROPIUM [Concomitant]
     Active Substance: IPRATROPIUM
     Indication: PRODUCT USED FOR UNKNOWN INDICATION
     Route: 065
  22. ERAVACYCLINE. [Suspect]
     Active Substance: ERAVACYCLINE
     Dosage: 40 MG, 1 PER 12 HOUR
     Route: 042
     Dates: start: 20190909, end: 20190923
  23. VORICONAZOLE. [Concomitant]
     Active Substance: VORICONAZOLE
     Indication: BRONCHOPULMONARY ASPERGILLOSIS
     Dosage: 200 MG, 1 PER 12 HOUR
     Route: 042
     Dates: start: 20190813, end: 20190816
  24. DORNASE ALFA. [Concomitant]
     Active Substance: DORNASE ALFA
     Indication: PRODUCT USED FOR UNKNOWN INDICATION
     Route: 065
  25. INSULIN LISPRO [Concomitant]
     Active Substance: INSULIN LISPRO
     Indication: PRODUCT USED FOR UNKNOWN INDICATION
     Route: 065
  26. PANCRELIPASE. [Concomitant]
     Active Substance: PANCRELIPASE
     Indication: PRODUCT USED FOR UNKNOWN INDICATION
     Route: 065
  27. CEFIDEROCOL. [Suspect]
     Active Substance: CEFIDEROCOL
     Indication: ACHROMOBACTER INFECTION
     Dosage: 2 G, 1 PER 8 HOUR
     Route: 042
     Dates: start: 20190901, end: 20190922
  28. ERAVACYCLINE. [Suspect]
     Active Substance: ERAVACYCLINE
     Dosage: 40 MG, 1 PER 12 HOUR
     Route: 042
     Dates: start: 20190828, end: 20190905
  29. MICAFUNGIN. [Concomitant]
     Active Substance: MICAFUNGIN SODIUM
     Indication: CANDIDA INFECTION
     Dosage: 100 MG, SINGLE
     Route: 042
     Dates: start: 20190820, end: 20190820
  30. DIPHENHYDRAMINE. [Concomitant]
     Active Substance: DIPHENHYDRAMINE
     Dosage: 50 MG, 3 PER 1 DAY
     Route: 042
     Dates: start: 20190901, end: 20190911
  31. MEGESTROL [Concomitant]
     Active Substance: MEGESTROL
     Indication: PRODUCT USED FOR UNKNOWN INDICATION
     Route: 065
  32. METHYLPREDNISOLONE. [Concomitant]
     Active Substance: METHYLPREDNISOLONE
     Indication: PRODUCT USED FOR UNKNOWN INDICATION
     Route: 065
  33. PANTOPRAZOLE [Concomitant]
     Active Substance: PANTOPRAZOLE
     Indication: PRODUCT USED FOR UNKNOWN INDICATION
     Route: 065
  34. SERTRALINE [Concomitant]
     Active Substance: SERTRALINE HYDROCHLORIDE
     Indication: PRODUCT USED FOR UNKNOWN INDICATION
     Route: 065

REACTIONS (3)
  - Paraesthesia [Recovering/Resolving]
  - Epistaxis [Recovered/Resolved]
  - Hypoaesthesia [Recovering/Resolving]

NARRATIVE: CASE EVENT DATE: 20190901
